FAERS Safety Report 17280906 (Version 1)
Quarter: 2020Q1

REPORT INFORMATION
  Report Type: Spontaneous
  Country: US (occurrence: US)
  Receive Date: 20200117
  Receipt Date: 20200117
  Transmission Date: 20200409
  Serious: No
  Sender: FDA-Public Use
  Company Number: US-ASTRAZENECA-2020SE04998

PATIENT
  Age: 5 Month
  Sex: Male
  Weight: 6.8 kg

DRUGS (3)
  1. SYNAGIS [Suspect]
     Active Substance: PALIVIZUMAB
     Indication: RESPIRATORY SYNCYTIAL VIRUS INFECTION
     Route: 030
  2. TYLENOL CHILDERNS [Concomitant]
  3. MULTIVITAMIN DROPS [Concomitant]

REACTIONS (2)
  - Upper respiratory tract infection [Unknown]
  - Pyrexia [Unknown]
